FAERS Safety Report 11965622 (Version 1)
Quarter: 2016Q1

REPORT INFORMATION
  Report Type: Spontaneous
  Country: AT (occurrence: AT)
  Receive Date: 20160127
  Receipt Date: 20160127
  Transmission Date: 20160526
  Serious: Yes (Hospitalization, Other)
  Sender: FDA-Public Use
  Company Number: PHHY2016AT007728

PATIENT
  Sex: Female

DRUGS (2)
  1. SANDOSTATIN LAR DEPOT [Suspect]
     Active Substance: OCTREOTIDE ACETATE
     Indication: CARCINOID SYNDROME
  2. SANDOSTATIN LAR DEPOT [Suspect]
     Active Substance: OCTREOTIDE ACETATE
     Indication: NEUROENDOCRINE CARCINOMA
     Dosage: 20 MG, QMO
     Route: 030

REACTIONS (17)
  - Malignant neoplasm progression [Unknown]
  - Chronic gastritis [Unknown]
  - Gamma-glutamyltransferase decreased [Unknown]
  - Arthralgia [Unknown]
  - Flatulence [Unknown]
  - Biliary colic [Unknown]
  - Cholelithiasis [Unknown]
  - Pelvic pain [Unknown]
  - Abdominal discomfort [Unknown]
  - Cholangitis [Unknown]
  - Hepatic pain [Recovered/Resolved]
  - Pain [Unknown]
  - C-reactive protein increased [Unknown]
  - Pelvic deformity [Unknown]
  - Liver function test abnormal [Unknown]
  - Abdominal pain upper [Unknown]
  - Painful respiration [Unknown]
